FAERS Safety Report 8115593-0 (Version None)
Quarter: 2012Q1

REPORT INFORMATION
  Report Type: 
  Country: None (occurrence: None)
  Receive Date: 20120206
  Receipt Date: 20120202
  Transmission Date: 20120608
  Serious: No
  Sender: FDA-Public Use
  Company Number: US-BAYER-2012-010993

PATIENT
  Sex: Female

DRUGS (1)
  1. MIRENA [Suspect]
     Indication: CONTRACEPTION
     Dosage: 20 MCG/24HR, CONT
     Dates: start: 20090101

REACTIONS (7)
  - DECREASED APPETITE [None]
  - FEELING ABNORMAL [None]
  - DEVICE BREAKAGE [None]
  - HORMONE LEVEL ABNORMAL [None]
  - FATIGUE [None]
  - DEPRESSION [None]
  - AMNESIA [None]
